FAERS Safety Report 5962708-6 (Version None)
Quarter: 2008Q4

REPORT INFORMATION
  Report Type: 
  Country: None (occurrence: None)
  Receive Date: 20081124
  Receipt Date: 20081114
  Transmission Date: 20090506
  Serious: Yes (Hospitalization)
  Sender: FDA-Public Use
  Company Number: BD-RANBAXY-2008RR-19348

PATIENT
  Age: 30 Year
  Sex: Male

DRUGS (2)
  1. SPIRONOLACTONE [Suspect]
     Indication: LIVER DISORDER
  2. FUROSEMIDE [Suspect]
     Indication: LIVER DISORDER

REACTIONS (1)
  - BUDD-CHIARI SYNDROME [None]
